FAERS Safety Report 7970366-4 (Version None)
Quarter: 2011Q4

REPORT INFORMATION
  Report Type: 
  Country: None (occurrence: None)
  Receive Date: 20111212
  Receipt Date: 20111205
  Transmission Date: 20120403
  Serious: Yes (Hospitalization, Other)
  Sender: FDA-Public Use
  Company Number: US-VERTEX PHARMACEUTICALS INC.-AE-2011-004483

PATIENT
  Sex: Female
  Weight: 86.26 kg

DRUGS (3)
  1. INCIVEK [Suspect]
     Indication: HEPATITIS C
     Route: 048
     Dates: start: 20111103
  2. PEGASYS [Concomitant]
     Indication: HEPATITIS C
     Route: 058
     Dates: start: 20111103
  3. RIBAVIRIN [Concomitant]
     Indication: HEPATITIS C
     Route: 048
     Dates: start: 20111103

REACTIONS (9)
  - ANAEMIA [None]
  - PNEUMONIA [None]
  - DYSPNOEA [None]
  - ASTHENIA [None]
  - HEADACHE [None]
  - ALOPECIA [None]
  - RASH PRURITIC [None]
  - SYNCOPE [None]
  - NAUSEA [None]
